FAERS Safety Report 17080151 (Version 1)
Quarter: 2019Q4

REPORT INFORMATION
  Report Type: Spontaneous
  Country: US (occurrence: US)
  Receive Date: 20191126
  Receipt Date: 20191126
  Transmission Date: 20200122
  Serious: Yes (Life-Threatening)
  Sender: FDA-Public Use
  Company Number: None

PATIENT
  Age: 90 Year
  Sex: Male
  Weight: 95.4 kg

DRUGS (3)
  1. LISINOPRIL 15 MG DAILY [Concomitant]
  2. RANITIDINE 300MG (HYDROCHLORIDE) [Suspect]
     Active Substance: RANITIDINE HYDROCHLORIDE
     Indication: GASTROOESOPHAGEAL REFLUX DISEASE
     Dosage: ?          QUANTITY:90 TABLET(S);?
     Route: 048
  3. XARALTO 20MG DAILY AS AN ANTICOAGULANT [Concomitant]

REACTIONS (3)
  - Product contamination [None]
  - Invasive ductal breast carcinoma [None]
  - Recalled product [None]

NARRATIVE: CASE EVENT DATE: 20191114
